FAERS Safety Report 5086097-7 (Version None)
Quarter: 2006Q3

REPORT INFORMATION
  Report Type: 
  Country: None (occurrence: None)
  Receive Date: 20060818
  Receipt Date: 20060811
  Transmission Date: 20061208
  Serious: Yes (Life-Threatening)
  Sender: FDA-Public Use
  Company Number: T200600770

PATIENT
  Age: 72 Year
  Sex: Male
  Weight: 44 kg

DRUGS (7)
  1. OPTIRAY 320 [Suspect]
     Indication: COMPUTERISED TOMOGRAM ABDOMEN
     Dosage: 65 ML, SINGLE, INTRAVENOUS
     Route: 042
     Dates: start: 20060710, end: 20060710
  2. ISOSORBIDE MONONITRATE [Concomitant]
  3. METHYLCOBAL (MECOBALAMIN) TABLET [Concomitant]
  4. DIOVAN [Concomitant]
  5. ADALAT (NIFEDIPINE) TABLET [Concomitant]
  6. DORNER (BERAPROST SODIUM) TABLET [Concomitant]
  7. BUFFERIN (ALUMINIUM GLYLCINATE, ACETYSALICYCLIC ACID) [Concomitant]

REACTIONS (4)
  - CARDIAC ARREST [None]
  - LOSS OF CONSCIOUSNESS [None]
  - RESPIRATORY ARREST [None]
  - SHOCK [None]
